FAERS Safety Report 9404548 (Version 1)
Quarter: 2013Q3

REPORT INFORMATION
  Report Type: Spontaneous
  Country: US (occurrence: US)
  Receive Date: 20130717
  Receipt Date: 20130717
  Transmission Date: 20140515
  Serious: No
  Sender: FDA-Public Use
  Company Number: US-BAYER-2013-086380

PATIENT
  Sex: Male

DRUGS (1)
  1. ALEVE TABLET [Suspect]
     Dosage: 1 DF, QD
     Route: 048
     Dates: start: 20130710

REACTIONS (1)
  - Drug ineffective [None]
